FAERS Safety Report 9252790 (Version 1)
Quarter: 2013Q2

REPORT INFORMATION
  Report Type: Spontaneous
  Country: FR (occurrence: FR)
  Receive Date: 20130424
  Receipt Date: 20130424
  Transmission Date: 20140414
  Serious: Yes (Hospitalization)
  Sender: FDA-Public Use
  Company Number: FR-ASTRAZENECA-2013SE25471

PATIENT
  Age: 16104 Day
  Sex: Female

DRUGS (7)
  1. INEXIUM [Suspect]
     Indication: ANKYLOSING SPONDYLITIS
     Route: 048
     Dates: start: 20110203, end: 20130304
  2. APRANAX [Suspect]
     Indication: ANKYLOSING SPONDYLITIS
     Route: 048
     Dates: start: 20110618, end: 20130304
  3. SIMPONI [Suspect]
     Indication: ANKYLOSING SPONDYLITIS
     Route: 058
     Dates: start: 20121024, end: 20121221
  4. TOPALGIC SR [Suspect]
     Indication: ANKYLOSING SPONDYLITIS
     Route: 048
     Dates: start: 20090911, end: 20130304
  5. MIRENA [Concomitant]
     Dates: start: 20110808
  6. SKENAN SR [Concomitant]
     Indication: ANKYLOSING SPONDYLITIS
     Route: 048
     Dates: start: 20100311
  7. ACTISKENAN [Concomitant]
     Indication: ANKYLOSING SPONDYLITIS
     Route: 048
     Dates: start: 20100311

REACTIONS (2)
  - Pulmonary embolism [Recovered/Resolved]
  - Phlebitis [Recovered/Resolved]
